FAERS Safety Report 18900559 (Version 1)
Quarter: 2021Q1

REPORT INFORMATION
  Report Type: Spontaneous
  Country: US (occurrence: US)
  Receive Date: 20210216
  Receipt Date: 20210216
  Transmission Date: 20210420
  Serious: Yes (Other)
  Sender: FDA-Public Use
  Company Number: US-GLAXOSMITHKLINE-US2021GSK043567

PATIENT
  Sex: Male

DRUGS (8)
  1. ZANTAC [Suspect]
     Active Substance: RANITIDINE HYDROCHLORIDE
     Indication: EROSIVE OESOPHAGITIS
     Dosage: UNK UNK, QD
     Route: 065
     Dates: start: 198901, end: 201012
  2. ZANTAC [Suspect]
     Active Substance: RANITIDINE HYDROCHLORIDE
     Indication: EROSIVE OESOPHAGITIS
     Dosage: UNK UNK, QD
     Route: 065
     Dates: start: 198901, end: 201012
  3. ZANTAC [Suspect]
     Active Substance: RANITIDINE HYDROCHLORIDE
     Indication: EROSIVE OESOPHAGITIS
     Dosage: UNK UNK, QD
     Route: 065
     Dates: start: 198901, end: 201012
  4. ZANTAC [Suspect]
     Active Substance: RANITIDINE HYDROCHLORIDE
     Indication: GASTROOESOPHAGEAL REFLUX DISEASE
  5. RANITIDINE CAPSULE [Suspect]
     Active Substance: RANITIDINE
     Indication: GASTROOESOPHAGEAL REFLUX DISEASE
  6. ZANTAC [Suspect]
     Active Substance: RANITIDINE HYDROCHLORIDE
     Indication: GASTROOESOPHAGEAL REFLUX DISEASE
  7. ZANTAC [Suspect]
     Active Substance: RANITIDINE HYDROCHLORIDE
     Indication: GASTROOESOPHAGEAL REFLUX DISEASE
  8. RANITIDINE CAPSULE [Suspect]
     Active Substance: RANITIDINE
     Indication: EROSIVE OESOPHAGITIS
     Dosage: UNK UNK, QD
     Route: 065
     Dates: start: 198901, end: 201012

REACTIONS (1)
  - Renal cancer [Unknown]
